FAERS Safety Report 10916407 (Version 1)
Quarter: 2015Q1

REPORT INFORMATION
  Report Type: Spontaneous
  Country: US (occurrence: US)
  Receive Date: 20150316
  Receipt Date: 20150316
  Transmission Date: 20150721
  Serious: No
  Sender: FDA-Public Use
  Company Number: US-CELGENEUS-USA-2015031554

PATIENT
  Age: 51 Year
  Sex: Female

DRUGS (1)
  1. OTEZLA [Suspect]
     Active Substance: APREMILAST
     Indication: PSORIATIC ARTHROPATHY
     Dosage: 60 MILLIGRAM
     Route: 048
     Dates: start: 20150101, end: 20150304

REACTIONS (4)
  - Laryngitis [Not Recovered/Not Resolved]
  - Oropharyngeal pain [Not Recovered/Not Resolved]
  - Asthma [Not Recovered/Not Resolved]
  - Bronchitis [Not Recovered/Not Resolved]

NARRATIVE: CASE EVENT DATE: 20150119
